FAERS Safety Report 7537699-7 (Version None)
Quarter: 2011Q2

REPORT INFORMATION
  Report Type: 
  Country: None (occurrence: None)
  Receive Date: 20110609
  Receipt Date: 20071002
  Transmission Date: 20111010
  Serious: Yes (Death, Hospitalization)
  Sender: FDA-Public Use
  Company Number: PHEH2007US11928

PATIENT
  Sex: Male

DRUGS (6)
  1. EXJADE [Suspect]
     Indication: IRON OVERLOAD
     Dosage: 2000 MG, BID
     Route: 048
     Dates: start: 20070701, end: 20070903
  2. PRILOSEC [Concomitant]
     Dosage: 20 MG, QD
     Route: 048
  3. ASPIRIN [Concomitant]
     Dosage: 81 MG, QD
     Route: 048
  4. WELCHOL [Concomitant]
     Dosage: 1875 MG, QD
     Route: 048
  5. TOPROL-XL [Concomitant]
     Dosage: 50 MG, QD
     Route: 048
  6. MULTI-VITAMINS [Concomitant]
     Route: 048

REACTIONS (7)
  - FEBRILE NEUTROPENIA [None]
  - ABSCESS JAW [None]
  - WHITE BLOOD CELL COUNT DECREASED [None]
  - HAEMOGLOBIN DECREASED [None]
  - RESPIRATORY FAILURE [None]
  - HAEMATOCRIT DECREASED [None]
  - MYELODYSPLASTIC SYNDROME [None]
